FAERS Safety Report 12894381 (Version 1)
Quarter: 2016Q4

REPORT INFORMATION
  Report Type: Spontaneous
  Country: US (occurrence: US)
  Receive Date: 20161028
  Receipt Date: 20161028
  Transmission Date: 20170207
  Serious: No
  Sender: FDA-Public Use
  Company Number: US-LUNDBECK-DKLU2020472

PATIENT
  Sex: Female

DRUGS (2)
  1. SABRIL [Suspect]
     Active Substance: VIGABATRIN
     Indication: EPILEPSY
     Route: 048
     Dates: start: 20120718
  2. SABRIL [Suspect]
     Active Substance: VIGABATRIN
     Indication: PARTIAL SEIZURES
     Route: 048
     Dates: start: 20151210

REACTIONS (1)
  - Headache [Unknown]
